FAERS Safety Report 22238032 (Version 2)
Quarter: 2023Q2

REPORT INFORMATION
  Report Type: Report from Study
  Country: CA (occurrence: CA)
  Receive Date: 20230421
  Receipt Date: 20230614
  Transmission Date: 20230721
  Serious: Yes (Other)
  Sender: FDA-Public Use
  Company Number: CA-SAMSUNG BIOEPIS-SB-2023-07184

PATIENT
  Age: 79 Year
  Sex: Male

DRUGS (9)
  1. RENFLEXIS [Suspect]
     Active Substance: INFLIXIMAB-ABDA
     Indication: Immune-mediated enterocolitis
     Dosage: WEEK 0-2-6 (LOADING DOSES COMPLETE)
     Route: 065
     Dates: start: 20230223, end: 20230310
  2. NIVOLUMAB [Concomitant]
     Active Substance: NIVOLUMAB
     Indication: Product used for unknown indication
     Dosage: UNKNOWN
     Route: 065
  3. IPILIMUMAB [Concomitant]
     Active Substance: IPILIMUMAB
     Indication: Product used for unknown indication
     Dosage: UNKNOWN
     Route: 065
  4. PREDNISONE [Concomitant]
     Active Substance: PREDNISONE
     Indication: Product used for unknown indication
     Route: 065
  5. PREDNISONE [Concomitant]
     Active Substance: PREDNISONE
     Route: 065
  6. PREDNISONE [Concomitant]
     Active Substance: PREDNISONE
     Route: 065
  7. BENADRYL [Concomitant]
     Active Substance: DIPHENHYDRAMINE HYDROCHLORIDE
     Indication: Product used for unknown indication
     Route: 048
  8. HYDROCORTISONE [Concomitant]
     Active Substance: HYDROCORTISONE
     Indication: Product used for unknown indication
     Route: 042
  9. LOPERAMIDE HYDROCHLORIDE [Concomitant]
     Active Substance: LOPERAMIDE HYDROCHLORIDE
     Indication: Product used for unknown indication
     Dosage: UNKNOWN
     Route: 065

REACTIONS (4)
  - Rash pruritic [Recovered/Resolved]
  - Rash pustular [Recovered/Resolved]
  - Neoplasm malignant [Recovered/Resolved]
  - Product use in unapproved indication [Unknown]

NARRATIVE: CASE EVENT DATE: 20230201
